FAERS Safety Report 22244897 (Version 1)
Quarter: 2023Q2

REPORT INFORMATION
  Report Type: Spontaneous
  Country: CA (occurrence: CA)
  Receive Date: 20230424
  Receipt Date: 20230424
  Transmission Date: 20230721
  Serious: Yes (Death, Other)
  Sender: FDA-Public Use
  Company Number: CA-PFIZER INC-202300164913

PATIENT
  Age: 73 Year
  Sex: Female

DRUGS (4)
  1. TRIAZOLAM [Suspect]
     Active Substance: TRIAZOLAM
     Dosage: UNK
     Route: 048
  2. DIAZEPAM [Suspect]
     Active Substance: DIAZEPAM
     Dosage: UNK
  3. NORDAZEPAM [Suspect]
     Active Substance: NORDAZEPAM
     Dosage: UNK
  4. IMIPRAMINE [Suspect]
     Active Substance: IMIPRAMINE
     Dosage: UNK

REACTIONS (2)
  - Death [Fatal]
  - Suicidal behaviour [Unknown]
